FAERS Safety Report 10596717 (Version 1)
Quarter: 2014Q4

REPORT INFORMATION
  Report Type: Spontaneous
  Country: US (occurrence: US)
  Receive Date: 20141120
  Receipt Date: 20141120
  Transmission Date: 20150529
  Serious: No
  Sender: FDA-Public Use
  Company Number: US-009507513-1410USA013591

PATIENT
  Sex: Male

DRUGS (3)
  1. REMERON [Suspect]
     Active Substance: MIRTAZAPINE
     Route: 048
  2. ZANAFLEX [Suspect]
     Active Substance: TIZANIDINE HYDROCHLORIDE
  3. NEUROTIN (ACETYLCARNITINE HYDROCHLORIDE) [Suspect]
     Active Substance: ACETYLCARNITINE HYDROCHLORIDE

REACTIONS (2)
  - Sleep talking [Unknown]
  - Hallucination [Unknown]
